FAERS Safety Report 6633196-1 (Version None)
Quarter: 2010Q1

REPORT INFORMATION
  Report Type: 
  Country: None (occurrence: None)
  Receive Date: 20100312
  Receipt Date: 20100309
  Transmission Date: 20100710
  Serious: Yes (Death, Hospitalization, Other)
  Sender: FDA-Public Use
  Company Number: PHHY2010BR13875

PATIENT
  Sex: Female

DRUGS (2)
  1. DIOVAN HCT [Suspect]
     Indication: HYPERTENSION
     Dosage: 1 TABLET (160/25 MG) DAILY
     Route: 048
  2. KETOPROFEN [Suspect]
     Indication: BONE PAIN
     Route: 042

REACTIONS (3)
  - BONE PAIN [None]
  - HALLUCINATION [None]
  - RENAL FAILURE [None]
